FAERS Safety Report 19312067 (Version 1)
Quarter: 2021Q2

REPORT INFORMATION
  Report Type: Report from Study
  Country: CA (occurrence: CA)
  Receive Date: 20210527
  Receipt Date: 20210527
  Transmission Date: 20210717
  Serious: Yes (Other)
  Sender: FDA-Public Use
  Company Number: CA-ASTRAZENECA-2021A412248

PATIENT
  Age: 28463 Day
  Sex: Female

DRUGS (8)
  1. FASENRA [Suspect]
     Active Substance: BENRALIZUMAB
     Indication: ASTHMA
     Dosage: 30.0MG UNKNOWN
     Route: 058
     Dates: start: 20191218
  2. ASTRAZENECA COVID?19 VACCINE [Suspect]
     Active Substance: AZD-1222
     Route: 030
     Dates: start: 202104
  3. PREDNISONE. [Concomitant]
     Active Substance: PREDNISONE
  4. NASONEX [Concomitant]
     Active Substance: MOMETASONE FUROATE
     Route: 065
  5. FLOVENT DISKUS [Concomitant]
     Active Substance: FLUTICASONE PROPIONATE
     Route: 065
  6. ADVAIR HFA [Concomitant]
     Active Substance: FLUTICASONE PROPIONATE\SALMETEROL XINAFOATE
     Route: 065
  7. ALVESCO [Concomitant]
     Active Substance: CICLESONIDE
     Route: 065
  8. VENTOLIN HFA [Concomitant]
     Active Substance: ALBUTEROL SULFATE
     Route: 065

REACTIONS (7)
  - Haematoma [Recovering/Resolving]
  - Headache [Unknown]
  - Drug ineffective [Unknown]
  - Labyrinthitis [Recovering/Resolving]
  - Anaemia [Unknown]
  - Pyrexia [Recovered/Resolved]
  - Hypertension [Recovering/Resolving]

NARRATIVE: CASE EVENT DATE: 20201218
